FAERS Safety Report 4648825-1 (Version None)
Quarter: 2005Q2

REPORT INFORMATION
  Report Type: 
  Country: None (occurrence: None)
  Receive Date: 20050427
  Receipt Date: 20050411
  Transmission Date: 20051028
  Serious: Yes (Disabling)
  Sender: FDA-Public Use
  Company Number: REM_00100_2005

PATIENT
  Age: 41 Year
  Sex: Female
  Weight: 60 kg

DRUGS (5)
  1. REMODULIN [Suspect]
     Indication: PULMONARY HYPERTENSION
     Dosage: 72 NG/KG/MIN CONTINUOUS SC
     Route: 058
     Dates: start: 20040810
  2. VIAGRA [Concomitant]
  3. ELAVIL [Concomitant]
  4. NEURONTIN [Concomitant]
  5. WARFARIN SODIUM [Concomitant]

REACTIONS (8)
  - DERMATITIS ACNEIFORM [None]
  - DIFFICULTY IN WALKING [None]
  - ERYTHEMA [None]
  - INFUSION SITE BRUISING [None]
  - INFUSION SITE PAIN [None]
  - INFUSION SITE RASH [None]
  - PAIN IN EXTREMITY [None]
  - PRURITUS [None]
